FAERS Safety Report 6447175-0 (Version None)
Quarter: 2009Q4

REPORT INFORMATION
  Report Type: 
  Country: None (occurrence: None)
  Receive Date: 20091119
  Receipt Date: 20091111
  Transmission Date: 20100525
  Serious: Yes (Hospitalization)
  Sender: FDA-Public Use
  Company Number: BE-ABBOTT-09P-013-0601825-00

PATIENT
  Sex: Male

DRUGS (4)
  1. TEVETEN [Suspect]
     Indication: HYPERTENSION
     Route: 048
     Dates: start: 20081215, end: 20090130
  2. DIURETIC [Concomitant]
     Indication: HYPERTENSION
     Route: 048
  3. CALCIUM BLOCKER [Concomitant]
     Indication: HYPERTENSION
     Route: 048
  4. ALFA BLOCKER [Concomitant]
     Indication: HYPERTENSION
     Route: 048

REACTIONS (2)
  - FALL [None]
  - FEMUR FRACTURE [None]
